FAERS Safety Report 6548440-9 (Version None)
Quarter: 2010Q1

REPORT INFORMATION
  Report Type: 
  Country: None (occurrence: None)
  Receive Date: 20100124
  Receipt Date: 20090821
  Transmission Date: 20100710
  Serious: No
  Sender: FDA-Public Use
  Company Number: US-ALLERGAN-0909238US

PATIENT
  Sex: Female

DRUGS (4)
  1. RESTASIS [Suspect]
     Indication: DRY EYE
     Dosage: UNK, UNKNOWN
     Route: 047
  2. RESTASIS [Suspect]
     Dosage: UNK, UNKNOWN
     Route: 047
  3. RESTASIS [Suspect]
     Dosage: UNK, UNKNOWN
     Route: 047
  4. OPTIVE [Suspect]
     Indication: DRY EYE
     Dosage: UNK, UNKNOWN
     Route: 047

REACTIONS (4)
  - EYE SWELLING [None]
  - EYELID OEDEMA [None]
  - OCULAR DISCOMFORT [None]
  - VISUAL FIELD DEFECT [None]
